FAERS Safety Report 17495295 (Version 1)
Quarter: 2020Q1

REPORT INFORMATION
  Report Type: Spontaneous
  Country: None (occurrence: US)
  Receive Date: 20200303
  Receipt Date: 20200303
  Transmission Date: 20200409
  Serious: No
  Sender: FDA-Public Use
  Company Number: US-FRESENIUS KABI-FK202002017

PATIENT
  Sex: Male
  Weight: 20 kg

DRUGS (4)
  1. INTRALIPID [Suspect]
     Active Substance: EGG PHOSPHOLIPIDS\GLYCERIN\SOYBEAN OIL
     Indication: PARENTERAL NUTRITION
     Route: 065
  2. INSULIN [Concomitant]
     Active Substance: INSULIN NOS
     Indication: PRODUCT USED FOR UNKNOWN INDICATION
     Route: 050
  3. OMEGAVEN [Suspect]
     Active Substance: FISH OIL
     Indication: PARENTERAL NUTRITION
     Dosage: STARTING DOSE OF 0.5 GRAM/KG/DAY
     Route: 065
  4. SMOFLIPID [Suspect]
     Active Substance: FISH OIL\MEDIUM-CHAIN TRIGLYCERIDES\OLIVE OIL\SOYBEAN OIL
     Indication: PARENTERAL NUTRITION
     Route: 065

REACTIONS (2)
  - Hypertriglyceridaemia [Unknown]
  - Intentional product use issue [Unknown]
